FAERS Safety Report 14762623 (Version 3)
Quarter: 2019Q4

REPORT INFORMATION
  Report Type: Spontaneous
  Country: JP (occurrence: JP)
  Receive Date: 20180416
  Receipt Date: 20191113
  Transmission Date: 20200122
  Serious: Yes (Other)
  Sender: FDA-Public Use
  Company Number: JP-ACTELION-A-CH2018-170520

PATIENT
  Age: 25 Day
  Sex: Female

DRUGS (3)
  1. OPSUMIT [Suspect]
     Active Substance: MACITENTAN
     Indication: PULMONARY HYPERTENSION
     Dosage: UNK
     Route: 048
  2. TADALAFIL. [Concomitant]
     Active Substance: TADALAFIL
  3. NITRIC OXIDE. [Concomitant]
     Active Substance: NITRIC OXIDE
     Route: 055

REACTIONS (3)
  - Pneumonia bacterial [Unknown]
  - Cardiac failure [Recovering/Resolving]
  - Pulmonary hypertension [Recovering/Resolving]
